FAERS Safety Report 4661423-9 (Version None)
Quarter: 2005Q2

REPORT INFORMATION
  Report Type: 
  Country: None (occurrence: None)
  Receive Date: 20050513
  Receipt Date: 20050505
  Transmission Date: 20051028
  Serious: Yes (Other)
  Sender: FDA-Public Use
  Company Number: CA-GLAXOSMITHKLINE-A0558007A

PATIENT
  Age: 54 Year
  Sex: Female

DRUGS (3)
  1. VENTOLIN HFA [Suspect]
     Indication: DRUG USE FOR UNKNOWN INDICATION
     Dosage: 2.5MG SINGLE DOSE
     Route: 055
  2. PULMICORT [Suspect]
     Indication: DRUG USE FOR UNKNOWN INDICATION
     Dosage: 2MG SINGLE DOSE
     Route: 055
  3. PAXIL [Concomitant]

REACTIONS (3)
  - HYPOAESTHESIA [None]
  - TONGUE OEDEMA [None]
  - URTICARIA [None]
